FAERS Safety Report 5262783-0 (Version None)
Quarter: 2007Q1

REPORT INFORMATION
  Report Type: 
  Country: None (occurrence: None)
  Receive Date: 20070312
  Receipt Date: 20070228
  Transmission Date: 20070707
  Serious: Yes (Other)
  Sender: FDA-Public Use
  Company Number: 468543

PATIENT
  Age: 76 Year
  Sex: Male

DRUGS (4)
  1. KREDEX [Suspect]
     Indication: CARDIAC FAILURE
     Dosage: 12.5MG TWICE PER DAY
     Route: 048
     Dates: start: 20050615
  2. AMLODIPINE [Concomitant]
  3. IRBESARTAN [Concomitant]
  4. FLECAINIDE ACETATE [Concomitant]

REACTIONS (5)
  - INTERMITTENT CLAUDICATION [None]
  - MUSCLE FATIGUE [None]
  - NERVOUS SYSTEM DISORDER [None]
  - NEUROPATHY [None]
  - POLYNEUROPATHY [None]
